FAERS Safety Report 20690552 (Version 5)
Quarter: 2022Q2

REPORT INFORMATION
  Report Type: Spontaneous
  Country: US (occurrence: None)
  Receive Date: 20220408
  Receipt Date: 20220630
  Transmission Date: 20220720
  Serious: Yes (Other)
  Sender: FDA-Public Use
  Company Number: 2022A135801

PATIENT
  Age: 940 Month
  Sex: Female
  Weight: 57.6 kg

DRUGS (2)
  1. SYMBICORT [Suspect]
     Active Substance: BUDESONIDE\FORMOTEROL FUMARATE DIHYDRATE
     Dosage: ONCE DAILY
     Route: 055
     Dates: start: 2019, end: 202202
  2. BUDESONIDE\FORMOTEROL\GLYCOPYRRONIUM [Suspect]
     Active Substance: BUDESONIDE\FORMOTEROL\GLYCOPYRRONIUM
     Indication: Chronic obstructive pulmonary disease
     Dosage: 160 MCG/9 MCG/4.8 MCG, 2 INHALATIONS 2 TIMES A DAY
     Route: 055
     Dates: start: 20220203

REACTIONS (10)
  - Lung neoplasm malignant [Unknown]
  - Pneumothorax [Unknown]
  - Metastases to central nervous system [Unknown]
  - Drug ineffective [Unknown]
  - Wrong technique in device usage process [Unknown]
  - Inappropriate schedule of product administration [Recovered/Resolved]
  - Incorrect dose administered by device [Recovered/Resolved]
  - Drug dose omission by device [Recovered/Resolved]
  - Device use issue [Unknown]
  - Device malfunction [Unknown]

NARRATIVE: CASE EVENT DATE: 20190101
